FAERS Safety Report 6016265-9 (Version None)
Quarter: 2008Q4

REPORT INFORMATION
  Report Type: 
  Country: None (occurrence: None)
  Receive Date: 20081218
  Receipt Date: 20081209
  Transmission Date: 20090506
  Serious: Yes (Death)
  Sender: FDA-Public Use
  Company Number: SPV1-2008-02593

PATIENT
  Age: 42 Year
  Sex: Female
  Weight: 72 kg

DRUGS (6)
  1. FOSRENOL [Suspect]
     Dosage: 1 G, 3X/DAY:TID
     Dates: start: 20081113, end: 20081120
  2. FLUVASTATIN [Concomitant]
  3. TORSEMIDE [Concomitant]
  4. RAMIPRIL [Concomitant]
  5. INSULIN ACTRAPID (INSULIN HUMAN) [Concomitant]
  6. INSULIN PROTAPHANE (INSULIN HUMAN INJECTION, ISOPHANE) [Concomitant]

REACTIONS (2)
  - SUDDEN DEATH [None]
  - VOMITING [None]
